FAERS Safety Report 9758357 (Version 1)
Quarter: 2013Q4

REPORT INFORMATION
  Report Type: Spontaneous
  Country: US (occurrence: US)
  Receive Date: 20131216
  Receipt Date: 20131216
  Transmission Date: 20140711
  Serious: Yes (Other)
  Sender: FDA-Public Use
  Company Number: US-SHIRE-ALL1-2013-08591

PATIENT
  Age: 26 Year
  Sex: Female

DRUGS (7)
  1. LIALDA [Suspect]
     Indication: PRODUCT USED FOR UNKNOWN INDICATION
     Dosage: UNK, UNKNOWN
     Route: 048
  2. REMICADE [Suspect]
     Indication: COLITIS ULCERATIVE
     Dosage: 10 MG/KG, OTHER (ONCE EVERY 6 WEEKS)
     Route: 065
     Dates: start: 2010
  3. REMICADE [Suspect]
     Dosage: UNK UNK, UNKNOWN
     Route: 065
     Dates: start: 2013
  4. REMICADE [Suspect]
     Dosage: UNK UNK, UNKNOWN
     Route: 065
     Dates: start: 20131115
  5. LACTOBACILLUS REUTERI [Concomitant]
     Indication: SUPPLEMENTATION THERAPY
     Dosage: UNK, UNKNOWN
     Route: 065
  6. ERGOCALCIFEROL [Concomitant]
     Indication: SUPPLEMENTATION THERAPY
     Dosage: UNK, UNKNOWN
     Route: 065
  7. CALCIUM MAGNESIUM                  /00591201/ [Concomitant]
     Indication: SUPPLEMENTATION THERAPY
     Dosage: UNK, UNKNOWN
     Route: 065

REACTIONS (10)
  - Pancreatic disorder [Unknown]
  - Gallbladder disorder [Unknown]
  - Haemorrhoids [Not Recovered/Not Resolved]
  - Abnormal loss of weight [Not Recovered/Not Resolved]
  - Stress [Unknown]
  - Drug ineffective [Unknown]
  - Exposure during pregnancy [Recovered/Resolved]
  - Colitis ulcerative [Unknown]
  - Abdominal pain upper [Unknown]
  - Rash macular [Recovered/Resolved]
